FAERS Safety Report 4609054-0 (Version None)
Quarter: 2005Q2

REPORT INFORMATION
  Report Type: 
  Country: None (occurrence: None)
  Receive Date: 20050228
  Receipt Date: 20040304
  Transmission Date: 20051028
  Serious: Yes (Hospitalization)
  Sender: FDA-Public Use
  Company Number: 1547

PATIENT
  Age: 79 Year
  Sex: Male

DRUGS (3)
  1. TARGRETIN CAPSULES [Suspect]
     Indication: MYCOSIS FUNGOIDES
     Dosage: 525 MG QD; PO
     Route: 048
     Dates: start: 20021217, end: 20021224
  2. ATORVASTATIN CALCIUM [Concomitant]
  3. CHLORHYDRATE/DOXEPIN [Concomitant]

REACTIONS (3)
  - PRURITUS [None]
  - PYREXIA [None]
  - RASH [None]
